FAERS Safety Report 16597227 (Version 1)
Quarter: 2019Q3

REPORT INFORMATION
  Report Type: Spontaneous
  Country: FR (occurrence: FR)
  Receive Date: 20190719
  Receipt Date: 20190719
  Transmission Date: 20191004
  Serious: Yes (Hospitalization)
  Sender: FDA-Public Use
  Company Number: FR-TEVA-2019-FR-1078959

PATIENT
  Age: 27 Year
  Sex: Male
  Weight: 102 kg

DRUGS (5)
  1. ACIDE FOLIQUE [Concomitant]
     Active Substance: FOLIC ACID
     Indication: SARCOIDOSIS
     Dosage: 4 5 MG TABLETS 48 HOURS AFTER METHOTREXATE
     Route: 048
     Dates: start: 20190312
  2. HUMIRA [Suspect]
     Active Substance: ADALIMUMAB
     Indication: SARCOIDOSIS
     Route: 058
     Dates: start: 201809, end: 201904
  3. CORTANCYL [Suspect]
     Active Substance: PREDNISONE
     Indication: SARCOIDOSIS
     Dosage: 10 MILLIGRAM DAILY;
     Route: 048
     Dates: start: 2018
  4. METHOTREXATE. [Suspect]
     Active Substance: METHOTREXATE
     Indication: SARCOIDOSIS
     Route: 058
     Dates: start: 201804
  5. INFLIXIMAB ((MAMMIFERE/SOURIS/SP2/O) [Concomitant]
     Active Substance: INFLIXIMAB
     Indication: SARCOIDOSIS
     Route: 042
     Dates: start: 201804, end: 201809

REACTIONS (2)
  - Peritoneal tuberculosis [Recovering/Resolving]
  - Mycobacterium avium complex infection [Recovering/Resolving]

NARRATIVE: CASE EVENT DATE: 20190422
